FAERS Safety Report 5862844-9 (Version None)
Quarter: 2008Q3

REPORT INFORMATION
  Report Type: 
  Country: None (occurrence: None)
  Receive Date: 20080828
  Receipt Date: 20080822
  Transmission Date: 20090109
  Serious: Yes (Hospitalization)
  Sender: FDA-Public Use
  Company Number: A0709954A

PATIENT
  Age: 52 Year
  Sex: Male
  Weight: 107.7 kg

DRUGS (6)
  1. AVANDIA [Suspect]
     Indication: DIABETES MELLITUS
     Dosage: 8MG PER DAY
     Route: 048
     Dates: start: 20020101, end: 20040101
  2. GLUCOPHAGE [Concomitant]
     Dates: start: 19980701, end: 20030101
  3. METFORMIN HCL [Concomitant]
     Dates: start: 19980701, end: 20030101
  4. GLUCOTROL [Concomitant]
     Dates: start: 19980101, end: 20030101
  5. LIPITOR [Concomitant]
     Dates: start: 20030601, end: 20080601
  6. LOPID [Concomitant]
     Dates: start: 19980101, end: 20080601

REACTIONS (3)
  - FLUID RETENTION [None]
  - MYOCARDIAL INFARCTION [None]
  - PAIN [None]
